FAERS Safety Report 5986014-9 (Version None)
Quarter: 2008Q4

REPORT INFORMATION
  Report Type: 
  Country: None (occurrence: None)
  Receive Date: 20081205
  Receipt Date: 20081205
  Transmission Date: 20090506
  Serious: Yes (Other)
  Sender: FDA-Public Use
  Company Number: None

PATIENT
  Age: 57 Year
  Sex: Male
  Weight: 97.5234 kg

DRUGS (1)
  1. PROVIGIL [Suspect]
     Indication: DEPRESSION
     Dosage: 400MG 2 TIMES A DAY PO
     Route: 048
     Dates: start: 20081016, end: 20081203

REACTIONS (2)
  - NO THERAPEUTIC RESPONSE [None]
  - RASH [None]
